FAERS Safety Report 11782254 (Version 4)
Quarter: 2016Q4

REPORT INFORMATION
  Report Type: Spontaneous
  Country: TW (occurrence: TW)
  Receive Date: 20151127
  Receipt Date: 20161201
  Transmission Date: 20170206
  Serious: Yes (Hospitalization, Other)
  Sender: FDA-Public Use
  Company Number: TW-AMGEN-TWNSP2015125689

PATIENT
  Age: 38 Year
  Sex: Female

DRUGS (3)
  1. ENBREL [Suspect]
     Active Substance: ETANERCEPT
     Dosage: 25 MG, EVERY 5 DAYS
     Route: 058
     Dates: start: 201512, end: 201512
  2. ENBREL [Suspect]
     Active Substance: ETANERCEPT
     Indication: RHEUMATOID ARTHRITIS
     Dosage: 25 MG, 2X/WEEK (TWICE PER WEEK)
     Route: 058
     Dates: start: 20140914, end: 20150902
  3. ENBREL [Suspect]
     Active Substance: ETANERCEPT
     Dosage: 25 MG, EVERY 6 DAYS
     Route: 058
     Dates: start: 20150902, end: 20151106

REACTIONS (3)
  - Road traffic accident [Not Recovered/Not Resolved]
  - Post procedural infection [Recovered/Resolved]
  - Upper limb fracture [Not Recovered/Not Resolved]

NARRATIVE: CASE EVENT DATE: 20151113
